FAERS Safety Report 4968772-5 (Version None)
Quarter: 2006Q2

REPORT INFORMATION
  Report Type: 
  Country: None (occurrence: None)
  Receive Date: 20060411
  Receipt Date: 20060403
  Transmission Date: 20061013
  Serious: Yes (Other)
  Sender: FDA-Public Use
  Company Number: DE-JNJFOC-20060401306

PATIENT
  Age: 68 Year
  Sex: Female

DRUGS (4)
  1. RISPERDAL CONSTA [Suspect]
     Route: 030
  2. XIPAMID [Concomitant]
     Indication: DIURETIC THERAPY
  3. OMEPRAZOLE [Concomitant]
  4. LAXATIVES [Concomitant]

REACTIONS (1)
  - LEUKOPENIA [None]
